FAERS Safety Report 7919542-7 (Version None)
Quarter: 2011Q4

REPORT INFORMATION
  Report Type: 
  Country: None (occurrence: None)
  Receive Date: 20111115
  Receipt Date: 20111103
  Transmission Date: 20120403
  Serious: Yes (Hospitalization)
  Sender: FDA-Public Use
  Company Number: DKLU1074590

PATIENT
  Sex: Female

DRUGS (4)
  1. LAMOTRIGINE [Suspect]
     Indication: PRODUCT USED FOR UNKNOWN INDICATION
     Dosage: 150 MILLIGRAM(S), 2 IN 1 D, TRANSDERMAL
     Route: 062
     Dates: start: 20090121, end: 20090925
  2. ZONEGRAN [Suspect]
     Indication: PRODUCT USED FOR UNKNOWN INDICATION
     Dosage: 100 MG MILLIGRAM(S), 2 IN 1 D, TRANSPLACENTAL
     Route: 064
     Dates: start: 20090121, end: 20090925
  3. ONFI [Suspect]
     Indication: PRODUCT USED FOR UNKNOWN INDICATION
     Dosage: 10 MG MILLIGRAM(S), 2 IN 1 D, ORAL
     Route: 048
     Dates: start: 20090121, end: 20090925
  4. CELESTONE [Concomitant]

REACTIONS (6)
  - CAESAREAN SECTION [None]
  - MATERNAL DRUGS AFFECTING FOETUS [None]
  - LOW BIRTH WEIGHT BABY [None]
  - GASTROOESOPHAGEAL REFLUX DISEASE [None]
  - FOETAL GROWTH RESTRICTION [None]
  - ASPIRATION [None]
